FAERS Safety Report 4993321-5 (Version None)
Quarter: 2006Q2

REPORT INFORMATION
  Report Type: 
  Country: None (occurrence: None)
  Receive Date: 20060505
  Receipt Date: 20060424
  Transmission Date: 20061013
  Serious: Yes (Hospitalization)
  Sender: FDA-Public Use
  Company Number: 2006AP01917

PATIENT
  Age: 35 Year
  Sex: Female

DRUGS (2)
  1. SEROQUEL [Suspect]
     Route: 048
     Dates: start: 20030501, end: 20060328
  2. LODOPIN [Concomitant]
     Route: 048
     Dates: start: 20060221, end: 20060328

REACTIONS (5)
  - ABNORMAL BEHAVIOUR [None]
  - AGGRESSION [None]
  - EXCITABILITY [None]
  - LOGORRHOEA [None]
  - PHYSICAL ASSAULT [None]
